FAERS Safety Report 22852090 (Version 2)
Quarter: 2024Q2

REPORT INFORMATION
  Report Type: Spontaneous
  Country: US (occurrence: US)
  Receive Date: 20230823
  Receipt Date: 20240415
  Transmission Date: 20240715
  Serious: No
  Sender: FDA-Public Use
  Company Number: US-GSK-US2023112011

PATIENT
  Age: 63 Year
  Sex: Female
  Weight: 87.09 kg

DRUGS (1)
  1. NUCALA [Suspect]
     Active Substance: MEPOLIZUMAB
     Indication: Product used for unknown indication
     Dosage: UNK
     Route: 065

REACTIONS (1)
  - Product dose omission issue [Unknown]

NARRATIVE: CASE EVENT DATE: 20230808
